FAERS Safety Report 7535275-3 (Version None)
Quarter: 2011Q2

REPORT INFORMATION
  Report Type: 
  Country: None (occurrence: None)
  Receive Date: 20110609
  Receipt Date: 20080130
  Transmission Date: 20111010
  Serious: Yes (Death)
  Sender: FDA-Public Use
  Company Number: PHHO2006UY20617

PATIENT
  Sex: Male

DRUGS (1)
  1. GLEEVEC [Suspect]
     Indication: CHRONIC MYELOID LEUKAEMIA
     Dosage: 800 MG, QD
     Route: 048
     Dates: start: 20040401, end: 20061101

REACTIONS (4)
  - SEPSIS [None]
  - NEOPLASM MALIGNANT [None]
  - BLAST CRISIS IN MYELOGENOUS LEUKAEMIA [None]
  - CYTOGENETIC ABNORMALITY [None]
